FAERS Safety Report 6294795-2 (Version None)
Quarter: 2009Q3

REPORT INFORMATION
  Report Type: 
  Country: None (occurrence: None)
  Receive Date: 20090803
  Receipt Date: 20090730
  Transmission Date: 20100115
  Serious: Yes (Life-Threatening)
  Sender: FDA-Public Use
  Company Number: ES-JNJFOC-20090709442

PATIENT
  Age: 74 Year
  Sex: Female

DRUGS (4)
  1. DURAGESIC-100 [Suspect]
     Indication: DRUG USE FOR UNKNOWN INDICATION
     Route: 062
  2. BROMAZEPAM [Interacting]
     Indication: DRUG USE FOR UNKNOWN INDICATION
     Route: 048
  3. TRAMADOL [Interacting]
     Indication: BACK PAIN
     Route: 048
  4. PREGABALIN [Interacting]
     Indication: BACK PAIN
     Route: 048

REACTIONS (3)
  - DRUG INTERACTION [None]
  - DYSPNOEA [None]
  - SOPOR [None]
